FAERS Safety Report 11023226 (Version 2)
Quarter: 2015Q2

REPORT INFORMATION
  Report Type: Spontaneous
  Country: US (occurrence: US)
  Receive Date: 20150413
  Receipt Date: 20150525
  Transmission Date: 20150821
  Serious: No
  Sender: FDA-Public Use
  Company Number: US-JNJFOC-20131202736

PATIENT
  Age: 62 Year
  Sex: Female

DRUGS (1)
  1. LEVAQUIN [Suspect]
     Active Substance: LEVOFLOXACIN
     Indication: SINUSITIS
     Route: 065
     Dates: start: 2003

REACTIONS (2)
  - Gait disturbance [Not Recovered/Not Resolved]
  - Joint swelling [Not Recovered/Not Resolved]
